FAERS Safety Report 9334808 (Version 1)
Quarter: 2013Q2

REPORT INFORMATION
  Report Type: Spontaneous
  Country: US (occurrence: US)
  Receive Date: 20130606
  Receipt Date: 20130606
  Transmission Date: 20140414
  Serious: No
  Sender: FDA-Public Use
  Company Number: US-AMGEN-USASP2013014482

PATIENT
  Age: 72 Year
  Sex: Female

DRUGS (12)
  1. PROLIA [Suspect]
     Indication: OSTEOPOROSIS POSTMENOPAUSAL
     Dosage: UNK
     Dates: start: 20120802
  2. CALCIUM WITH VITAMIN D             /00944201/ [Concomitant]
     Dosage: UNK
  3. COUMADIN                           /00014802/ [Concomitant]
     Dosage: 7.5 MG, 6 TIMES/WK
  4. COUMADIN                           /00014802/ [Concomitant]
     Dosage: 5 MG 2 TAB, QWK
  5. FUROSEMIDE [Concomitant]
     Dosage: UNK
  6. GABAPENTIN [Concomitant]
     Dosage: 800 MG, QID
  7. LISINOPRIL [Concomitant]
     Dosage: 30 MG, QD
  8. LOVASTATIN [Concomitant]
     Dosage: 20 MG, QD
  9. NITROGLYCERIN [Concomitant]
     Dosage: UNK UNK, AS NECESSARY
  10. POTASSIUM [Concomitant]
     Dosage: 20 MG, QD
  11. GARLIC                             /01570501/ [Concomitant]
     Dosage: 8 DF, BID
  12. FIBER CHOICE PLUS CALCIUM [Concomitant]
     Dosage: 2 DF, BID

REACTIONS (3)
  - Musculoskeletal chest pain [Unknown]
  - Bone pain [Not Recovered/Not Resolved]
  - Back pain [Not Recovered/Not Resolved]
